FAERS Safety Report 8601382-7 (Version None)
Quarter: 2012Q3

REPORT INFORMATION
  Report Type: 
  Country: None (occurrence: None)
  Receive Date: 20120817
  Receipt Date: 20120814
  Transmission Date: 20120928
  Serious: Yes (Death, Other)
  Sender: FDA-Public Use
  Company Number: CZ-AMGEN-CZESP2012051402

PATIENT
  Age: 68 Year
  Sex: Female

DRUGS (3)
  1. CINACALCET HYDROCHLORIDE [Suspect]
     Dosage: 270 MG, QD
  2. CINACALCET HYDROCHLORIDE [Suspect]
     Indication: PARATHYROID TUMOUR MALIGNANT
     Dosage: 180 MG, QD
  3. DACARBAZIN [Concomitant]
     Indication: PARATHYROID TUMOUR MALIGNANT
     Dosage: UNK

REACTIONS (2)
  - DRUG EFFECT DECREASED [None]
  - HYPERCALCAEMIA [None]
